FAERS Safety Report 9165153 (Version 2)
Quarter: 2013Q2

REPORT INFORMATION
  Report Type: Spontaneous
  Country: JP (occurrence: None)
  Receive Date: 20130228
  Receipt Date: 20130503
  Transmission Date: 20140414
  Serious: Yes (Other)
  Sender: FDA-Public Use
  Company Number: SYM-2013-00929

PATIENT
  Age: 64 Year
  Sex: Female

DRUGS (5)
  1. FLUOROURACIL [Suspect]
     Indication: RECTAL CANCER
     Route: 040
     Dates: start: 20091104, end: 20091104
  2. OXALIPLATIN [Suspect]
     Indication: RECTAL CANCER
     Route: 040
     Dates: start: 20091104, end: 20091104
  3. CALCUIM LEVOFOLINATE (CALCIUM LEVOFOLINATE) [Concomitant]
  4. GRANISETRON (GRANISETRON) (GRANISETRON) [Concomitant]
  5. DEXAMETHASONE SODIUM PHOSPHATE (DEXAMETHASONE SODIUM PHOSPHATE) (DEXAMETHASONE SODIUM PHOSPHATE) [Concomitant]

REACTIONS (6)
  - Non-alcoholic steatohepatitis [None]
  - Portal hypertension [None]
  - Platelet count decreased [None]
  - Splenomegaly [None]
  - Varicose vein [None]
  - Hepatic fibrosis [None]
